FAERS Safety Report 13373287 (Version 1)
Quarter: 2017Q1

REPORT INFORMATION
  Report Type: Report from Study
  Country: US (occurrence: US)
  Receive Date: 20170327
  Receipt Date: 20170327
  Transmission Date: 20170429
  Serious: Yes (Life-Threatening)
  Sender: FDA-Public Use
  Company Number: US-PFIZER INC-2002119160US

PATIENT
  Age: 9 Year
  Sex: Female
  Weight: 25 kg

DRUGS (4)
  1. GENOTROPIN [Suspect]
     Active Substance: SOMATROPIN
     Dosage: 7.2 MG, WEEKLY, 6 INJECTIONS PER WEEK
     Dates: start: 20020429, end: 20020530
  2. FINASTERIDE. [Suspect]
     Active Substance: FINASTERIDE
     Dosage: UNK
  3. GENOTROPIN [Suspect]
     Active Substance: SOMATROPIN
     Indication: HYPOPITUITARISM
     Dosage: 6 MG, WEEKLY, 6 INJECTIONS/WEEK
     Route: 058
     Dates: start: 20010806, end: 200202
  4. GUANFACINE. [Suspect]
     Active Substance: GUANFACINE
     Dosage: 1.0 MG, BID

REACTIONS (1)
  - Alveolar rhabdomyosarcoma [Not Recovered/Not Resolved]

NARRATIVE: CASE EVENT DATE: 20020530
